FAERS Safety Report 24266956 (Version 3)
Quarter: 2025Q2

REPORT INFORMATION
  Report Type: Report from Study
  Country: IT (occurrence: IT)
  Receive Date: 20240830
  Receipt Date: 20250430
  Transmission Date: 20250717
  Serious: Yes (Other)
  Sender: AUROBINDO
  Company Number: IT-Desitin-2024-01902

PATIENT
  Age: 27 Year
  Sex: Male

DRUGS (36)
  1. ESLICARBAZEPINE ACETATE [Suspect]
     Active Substance: ESLICARBAZEPINE ACETATE
     Indication: Lennox-Gastaut syndrome
     Route: 065
  2. ESLICARBAZEPINE ACETATE [Suspect]
     Active Substance: ESLICARBAZEPINE ACETATE
     Indication: Infantile spasms
  3. LAMOTRIGINE [Suspect]
     Active Substance: LAMOTRIGINE
     Indication: Lennox-Gastaut syndrome
     Route: 065
  4. LAMOTRIGINE [Suspect]
     Active Substance: LAMOTRIGINE
     Indication: Infantile spasms
  5. LEVETIRACETAM [Suspect]
     Active Substance: LEVETIRACETAM
     Indication: Lennox-Gastaut syndrome
     Route: 065
  6. LEVETIRACETAM [Suspect]
     Active Substance: LEVETIRACETAM
     Indication: Infantile spasms
  7. VALPROATE SODIUM [Suspect]
     Active Substance: VALPROATE SODIUM
     Indication: Lennox-Gastaut syndrome
     Route: 065
  8. VALPROATE SODIUM [Suspect]
     Active Substance: VALPROATE SODIUM
     Indication: Infantile spasms
  9. LACOSAMIDE [Suspect]
     Active Substance: LACOSAMIDE
     Indication: Lennox-Gastaut syndrome
     Route: 065
  10. LACOSAMIDE [Suspect]
     Active Substance: LACOSAMIDE
     Indication: Infantile spasms
  11. CORTICOTROPIN [Suspect]
     Active Substance: CORTICOTROPIN
     Indication: Lennox-Gastaut syndrome
     Route: 065
  12. CORTICOTROPIN [Suspect]
     Active Substance: CORTICOTROPIN
     Indication: Infantile spasms
  13. BRIVARACETAM [Suspect]
     Active Substance: BRIVARACETAM
     Indication: Lennox-Gastaut syndrome
     Route: 065
  14. BRIVARACETAM [Suspect]
     Active Substance: BRIVARACETAM
     Indication: Infantile spasms
  15. CENOBAMATE [Interacting]
     Active Substance: CENOBAMATE
     Indication: Lennox-Gastaut syndrome
     Route: 065
  16. CLOBAZAM [Interacting]
     Active Substance: CLOBAZAM
     Indication: Lennox-Gastaut syndrome
     Dosage: 30 MILLIGRAM, ONCE A DAY
     Route: 065
  17. CLOBAZAM [Interacting]
     Active Substance: CLOBAZAM
     Indication: Infantile spasms
     Route: 065
  18. CLONAZEPAM [Suspect]
     Active Substance: CLONAZEPAM
     Indication: Lennox-Gastaut syndrome
     Route: 065
  19. CLONAZEPAM [Suspect]
     Active Substance: CLONAZEPAM
     Indication: Infantile spasms
  20. CORTICOTROPIN [Suspect]
     Active Substance: CORTICOTROPIN
     Indication: Lennox-Gastaut syndrome
     Route: 065
  21. ETHOSUXIMIDE [Suspect]
     Active Substance: ETHOSUXIMIDE
     Indication: Lennox-Gastaut syndrome
     Route: 065
  22. ETHOSUXIMIDE [Suspect]
     Active Substance: ETHOSUXIMIDE
     Indication: Infantile spasms
  23. NITRAZEPAM [Suspect]
     Active Substance: NITRAZEPAM
     Indication: Lennox-Gastaut syndrome
     Route: 065
  24. NITRAZEPAM [Suspect]
     Active Substance: NITRAZEPAM
     Indication: Infantile spasms
  25. PERAMPANEL [Suspect]
     Active Substance: PERAMPANEL
     Indication: Lennox-Gastaut syndrome
     Route: 065
  26. PERAMPANEL [Suspect]
     Active Substance: PERAMPANEL
     Indication: Infantile spasms
  27. PHENOBARBITAL [Suspect]
     Active Substance: PHENOBARBITAL
     Indication: Lennox-Gastaut syndrome
     Route: 065
  28. PHENOBARBITAL [Suspect]
     Active Substance: PHENOBARBITAL
     Indication: Infantile spasms
  29. RUFINAMIDE [Suspect]
     Active Substance: RUFINAMIDE
     Indication: Lennox-Gastaut syndrome
     Route: 065
  30. RUFINAMIDE [Suspect]
     Active Substance: RUFINAMIDE
     Indication: Infantile spasms
  31. TOPIRAMATE [Suspect]
     Active Substance: TOPIRAMATE
     Indication: Lennox-Gastaut syndrome
     Route: 065
  32. TOPIRAMATE [Suspect]
     Active Substance: TOPIRAMATE
     Indication: Infantile spasms
  33. VIGABATRIN [Suspect]
     Active Substance: VIGABATRIN
     Indication: Lennox-Gastaut syndrome
     Route: 065
  34. VIGABATRIN [Suspect]
     Active Substance: VIGABATRIN
     Indication: Infantile spasms
  35. ZONISAMIDE [Suspect]
     Active Substance: ZONISAMIDE
     Indication: Lennox-Gastaut syndrome
     Dosage: 300 MILLIGRAM, ONCE A DAY
     Route: 065
  36. ZONISAMIDE [Suspect]
     Active Substance: ZONISAMIDE
     Indication: Infantile spasms

REACTIONS (3)
  - Somnolence [Recovered/Resolved]
  - Drug interaction [Recovered/Resolved]
  - Drug ineffective [Unknown]
